FAERS Safety Report 10931820 (Version 6)
Quarter: 2015Q2

REPORT INFORMATION
  Report Type: Spontaneous
  Country: US (occurrence: US)
  Receive Date: 20150319
  Receipt Date: 20150526
  Transmission Date: 20150821
  Serious: Yes (Hospitalization, Disabling, Other)
  Sender: FDA-Public Use
  Company Number: US-009507513-1110USA00458

PATIENT
  Sex: Female

DRUGS (2)
  1. FOSAMAX [Suspect]
     Active Substance: ALENDRONATE SODIUM
     Indication: OSTEOPOROSIS
     Dosage: 70 MG, UNK
     Route: 048
     Dates: start: 20010320, end: 20080227
  2. ALENDRONATE SODIUM. [Suspect]
     Active Substance: ALENDRONATE SODIUM
     Indication: OSTEOPOROSIS
     Dosage: 70 MG, UNK
     Route: 048
     Dates: start: 20080227, end: 20101114

REACTIONS (47)
  - Fall [Unknown]
  - Back pain [Unknown]
  - Left ventricular failure [Unknown]
  - Chest pain [Unknown]
  - Pneumonia [Unknown]
  - Renal cyst [Unknown]
  - Cardiac failure congestive [Unknown]
  - Femur fracture [Not Recovered/Not Resolved]
  - Hypertension [Unknown]
  - Appendicectomy [Unknown]
  - Rib fracture [Unknown]
  - Cardiac failure congestive [Unknown]
  - Hypercholesterolaemia [Unknown]
  - Hypertriglyceridaemia [Unknown]
  - Gait disturbance [Unknown]
  - Cardiac failure congestive [Unknown]
  - Low turnover osteopathy [Not Recovered/Not Resolved]
  - Atrioventricular block complete [Unknown]
  - Blood disorder [Unknown]
  - Acute respiratory failure [Unknown]
  - Hyperlipidaemia [Unknown]
  - Incisional hernia [Unknown]
  - Cardiac failure congestive [Unknown]
  - Arrhythmia [Unknown]
  - Syncope [Unknown]
  - Intramedullary rod insertion [Unknown]
  - Osteoporosis [Not Recovered/Not Resolved]
  - Acute kidney injury [Unknown]
  - Vitamin D deficiency [Unknown]
  - Coordination abnormal [Unknown]
  - Chronic kidney disease [Unknown]
  - Cardiac pacemaker insertion [Unknown]
  - Ventricular tachycardia [Unknown]
  - Arteriosclerosis coronary artery [Unknown]
  - Stress fracture [Not Recovered/Not Resolved]
  - Type 2 diabetes mellitus [Unknown]
  - Cardiac failure [Unknown]
  - Hypothyroidism [Unknown]
  - Dyspnoea [Unknown]
  - Cardiac arrest [Unknown]
  - Inguinal hernia [Unknown]
  - Umbilical hernia [Unknown]
  - Cardiomyopathy [Unknown]
  - Cardiomyopathy [Unknown]
  - Pleural effusion [Unknown]
  - Back pain [Unknown]
  - Asthenia [Unknown]

NARRATIVE: CASE EVENT DATE: 2002
